FAERS Safety Report 12612024 (Version 3)
Quarter: 2016Q3

REPORT INFORMATION
  Report Type: Report from Study
  Country: BR (occurrence: BR)
  Receive Date: 20160801
  Receipt Date: 20160819
  Transmission Date: 20161109
  Serious: Yes (Other)
  Sender: FDA-Public Use
  Company Number: BR-JNJFOC-20160324598

PATIENT
  Sex: Female
  Weight: 58 kg

DRUGS (2)
  1. REMICADE [Suspect]
     Active Substance: INFLIXIMAB
     Indication: ANKYLOSING SPONDYLITIS
     Route: 042
     Dates: start: 2013, end: 20150707
  2. REMICADE [Suspect]
     Active Substance: INFLIXIMAB
     Indication: ANKYLOSING SPONDYLITIS
     Route: 042
     Dates: start: 20140715, end: 201507

REACTIONS (7)
  - Ankylosing spondylitis [Not Recovered/Not Resolved]
  - Groin pain [Not Recovered/Not Resolved]
  - Tooth infection [Unknown]
  - Gingival disorder [Unknown]
  - Pain in extremity [Not Recovered/Not Resolved]
  - Tooth loss [Unknown]
  - Pelvic pain [Not Recovered/Not Resolved]
